FAERS Safety Report 23468675 (Version 1)
Quarter: 2024Q1

REPORT INFORMATION
  Report Type: Spontaneous
  Country: US (occurrence: US)
  Receive Date: 20240202
  Receipt Date: 20240202
  Transmission Date: 20240410
  Serious: Yes (Other)
  Sender: FDA-Public Use
  Company Number: US-HALEON-USCH2024004755

PATIENT
  Sex: Female

DRUGS (2)
  1. ROBITUSSIN HONEY SEVERE COUGH, FLU PLUS SORE THROAT [Suspect]
     Active Substance: ACETAMINOPHEN\DEXTROMETHORPHAN HYDROBROMIDE
     Indication: Diarrhoea
     Dosage: UNK
  2. ROBITUSSIN HONEY SEVERE COUGH, FLU PLUS SORE THROAT [Suspect]
     Active Substance: ACETAMINOPHEN\DEXTROMETHORPHAN HYDROBROMIDE
     Indication: Oropharyngeal pain

REACTIONS (12)
  - Abortion spontaneous [Unknown]
  - Nausea [Unknown]
  - Abdominal pain upper [Unknown]
  - Muscle spasms [Unknown]
  - Vomiting [Unknown]
  - Asthenia [Unknown]
  - Gait inability [Unknown]
  - Illness [Unknown]
  - Disturbance in attention [Unknown]
  - Recalled product administered [Unknown]
  - Product use in unapproved indication [Unknown]
  - Exposure during pregnancy [Unknown]
